FAERS Safety Report 11685308 (Version 1)
Quarter: 2015Q4

REPORT INFORMATION
  Report Type: Spontaneous
  Country: US (occurrence: None)
  Receive Date: 20151029
  Receipt Date: 20151029
  Transmission Date: 20160304
  Serious: No
  Sender: FDA-Public Use
  Company Number: None

PATIENT
  Age: 58 Year
  Sex: Female
  Weight: 97.98 kg

DRUGS (10)
  1. RESTASIS [Suspect]
     Active Substance: CYCLOSPORINE
     Indication: DRY EYE
     Route: 047
     Dates: start: 20151021, end: 20151025
  2. POTASSIUM CHLORIDE ER [Concomitant]
     Active Substance: POTASSIUM CHLORIDE
  3. MONTELUKAST SODIUM. [Concomitant]
     Active Substance: MONTELUKAST SODIUM
  4. CENTRUM SILVER MULTIVITAMIN [Concomitant]
  5. OASIS TEARS PRESERVATIVE-FREE LUBRICANT EYE DROPS [Concomitant]
  6. FUROSEMIDE (GENERIC FOR LASIX) [Concomitant]
  7. PREDNISOLONE ACETATE OPTHALMIC SUSPENSION UPS [Concomitant]
  8. EXTRA STRENGTH ACETAMINOPHEN [Concomitant]
     Active Substance: ACETAMINOPHEN
  9. REFRESH OPTIVE ADVANCE LUBRICANT EYE DROPS [Concomitant]
  10. FIBER THERAPY [Concomitant]
     Active Substance: METHYLCELLULOSE (4000 MPA.S)

REACTIONS (7)
  - Ocular hyperaemia [None]
  - Lacrimation increased [None]
  - Dry eye [None]
  - Hypersensitivity [None]
  - Foreign body sensation in eyes [None]
  - Eye pain [None]
  - Eye irritation [None]

NARRATIVE: CASE EVENT DATE: 20151026
